FAERS Safety Report 4674253-9 (Version None)
Quarter: 2005Q2

REPORT INFORMATION
  Report Type: 
  Country: None (occurrence: None)
  Receive Date: 20050524
  Receipt Date: 20050506
  Transmission Date: 20051028
  Serious: Yes (Other)
  Sender: FDA-Public Use
  Company Number: USA050496711

PATIENT
  Age: 78 Year
  Sex: Female
  Weight: 52 kg

DRUGS (9)
  1. CYMBALTA [Suspect]
     Indication: DIABETIC NEUROPATHY
     Dosage: 30 MG
     Dates: start: 20050426, end: 20050427
  2. CYMBALTA [Suspect]
     Indication: NEUROPATHIC PAIN
     Dosage: 30 MG
     Dates: start: 20050426, end: 20050427
  3. INDERAL LA [Concomitant]
  4. NEURONTIN (GABAPENTIN PFIZER) [Concomitant]
  5. GLIPIZIDE [Concomitant]
  6. ULTRAM [Concomitant]
  7. EXTRA STRENGTH TYLENOL [Concomitant]
  8. ACTONEL [Concomitant]
  9. XANAX (ALPRAZOLAM DUM) [Concomitant]

REACTIONS (7)
  - BLOOD PRESSURE INCREASED [None]
  - CHEST DISCOMFORT [None]
  - CHEST PAIN [None]
  - DYSPNOEA [None]
  - HEART RATE INCREASED [None]
  - INSOMNIA [None]
  - TREMOR [None]
